FAERS Safety Report 15372897 (Version 1)
Quarter: 2018Q3

REPORT INFORMATION
  Report Type: Other
  Country: US (occurrence: US)
  Receive Date: 20180912
  Receipt Date: 20180912
  Transmission Date: 20181010
  Serious: Yes (Hospitalization)
  Sender: FDA-Public Use
  Company Number: US-LAURUS LABS LIMITED-201800191

PATIENT
  Age: 17 Year
  Sex: Male

DRUGS (1)
  1. METFORMIN [Suspect]
     Active Substance: METFORMIN HYDROCHLORIDE
     Indication: SUICIDE ATTEMPT
     Dosage: TOTAL DOSE 10,000MG
     Route: 048

REACTIONS (13)
  - Toxicity to various agents [Unknown]
  - Cardiomyopathy [Recovered/Resolved]
  - Hypoglycaemia [Recovered/Resolved]
  - Intentional overdose [Unknown]
  - Abdominal pain [Unknown]
  - Renal tubular dysfunction [Recovered/Resolved]
  - Suicide attempt [Unknown]
  - Vomiting [Unknown]
  - Mental status changes [Unknown]
  - Somnolence [Unknown]
  - Lactic acidosis [Recovered/Resolved]
  - Aggression [Unknown]
  - Metabolic acidosis [Recovered/Resolved]
